FAERS Safety Report 20570794 (Version 4)
Quarter: 2022Q3

REPORT INFORMATION
  Report Type: Report from Study
  Country: US (occurrence: US)
  Receive Date: 20220309
  Receipt Date: 20220723
  Transmission Date: 20221027
  Serious: Yes (Other)
  Sender: FDA-Public Use
  Company Number: US-NOVARTISPH-NVSC2022US051769

PATIENT
  Sex: Male

DRUGS (1)
  1. ENTRESTO [Suspect]
     Active Substance: SACUBITRIL\VALSARTAN
     Indication: Product used for unknown indication
     Dosage: 0.5 DOSAGE FORM, BID (24/26 MG 1/2 PILL)
     Route: 048

REACTIONS (7)
  - Ventricular fibrillation [Unknown]
  - Weight increased [Recovering/Resolving]
  - Fluid retention [Unknown]
  - Dizziness [Recovered/Resolved]
  - Hypotension [Unknown]
  - Incorrect dose administered [Unknown]
  - Wrong technique in product usage process [Not Recovered/Not Resolved]
